FAERS Safety Report 9812780 (Version 1)
Quarter: 2014Q1

REPORT INFORMATION
  Report Type: Spontaneous
  Country: US (occurrence: None)
  Receive Date: 20140108
  Receipt Date: 20140108
  Transmission Date: 20141002
  Serious: No
  Sender: FDA-Public Use
  Company Number: CC 13-0939

PATIENT
  Sex: Male

DRUGS (1)
  1. CALCIPOTRIENE [Suspect]
     Dosage: APPLIED A THIN LAYER DAILY, TOPICAL.
     Dates: start: 201305, end: 201308

REACTIONS (5)
  - Dyspnoea [None]
  - Heart rate increased [None]
  - Malaise [None]
  - Sleep disorder [None]
  - Photosensitivity reaction [None]
